FAERS Safety Report 5674092-6 (Version None)
Quarter: 2008Q1

REPORT INFORMATION
  Report Type: 
  Country: None (occurrence: None)
  Receive Date: 20080320
  Receipt Date: 20080311
  Transmission Date: 20080703
  Serious: Yes (Hospitalization)
  Sender: FDA-Public Use
  Company Number: US-JNJFOC-20080303044

PATIENT
  Sex: Male
  Weight: 90.72 kg

DRUGS (9)
  1. FENTANYL TRANSDERMAL SYSTEM [Suspect]
     Indication: PAIN
     Route: 062
  2. COREG [Concomitant]
     Indication: HYPERTENSION
     Route: 065
  3. LOTREL [Concomitant]
     Indication: HYPERTENSION
     Route: 065
  4. ASACOL [Concomitant]
     Indication: CROHN'S DISEASE
     Route: 048
  5. NOVOLOG [Concomitant]
     Indication: DIABETES MELLITUS
     Dosage: 30-40 UNITS, TID SLIDING SCALE
     Route: 058
  6. NEURONTIN [Concomitant]
     Indication: MUSCLE RELAXANT THERAPY
     Route: 065
  7. ULTRAM ER [Concomitant]
     Indication: PAIN
     Route: 065
  8. LANTUS [Concomitant]
     Indication: DIABETES MELLITUS
     Route: 065
  9. SOMA [Concomitant]
     Indication: MUSCLE RELAXANT THERAPY
     Route: 065

REACTIONS (5)
  - BLOOD CHOLESTEROL INCREASED [None]
  - ELECTROCARDIOGRAM ABNORMAL [None]
  - FLUSHING [None]
  - HYPERHIDROSIS [None]
  - LOSS OF CONSCIOUSNESS [None]
